FAERS Safety Report 8522723-5 (Version None)
Quarter: 2012Q3

REPORT INFORMATION
  Report Type: 
  Country: None (occurrence: None)
  Receive Date: 20120719
  Receipt Date: 20120711
  Transmission Date: 20120928
  Serious: Yes (Other)
  Sender: FDA-Public Use
  Company Number: JP-GLAXOSMITHKLINE-B0814535A

PATIENT
  Age: 89 Year
  Sex: Female

DRUGS (4)
  1. ADVAIR DISKUS 100/50 [Suspect]
     Indication: ASTHMA
     Dosage: 500MCG PER DAY
     Route: 055
     Dates: start: 20120301, end: 20120710
  2. BUFFERIN [Suspect]
     Route: 048
  3. EVISTA [Concomitant]
     Route: 048
  4. AMLODIPINE [Concomitant]
     Route: 048

REACTIONS (2)
  - LARYNGEAL HAEMORRHAGE [None]
  - GINGIVAL BLEEDING [None]
